FAERS Safety Report 8060927-9 (Version None)
Quarter: 2012Q1

REPORT INFORMATION
  Report Type: 
  Country: None (occurrence: None)
  Receive Date: 20120120
  Receipt Date: 20110328
  Transmission Date: 20120608
  Serious: No
  Sender: FDA-Public Use
  Company Number: US-ALLERGAN-1104310US

PATIENT
  Age: 70 Year
  Sex: Female

DRUGS (4)
  1. LUMIGAN [Concomitant]
     Indication: GLAUCOMA
  2. RESTASIS [Suspect]
     Indication: DRY EYE
     Dosage: 1 GTT, QD
     Route: 047
     Dates: start: 20100601
  3. ALPHAGAN [Concomitant]
     Indication: GLAUCOMA
  4. XALATAN [Concomitant]
     Indication: GLAUCOMA

REACTIONS (4)
  - ASTHENIA [None]
  - VERTIGO [None]
  - MALAISE [None]
  - INFLUENZA LIKE ILLNESS [None]
